FAERS Safety Report 5721375-7 (Version None)
Quarter: 2008Q2

REPORT INFORMATION
  Report Type: 
  Country: None (occurrence: None)
  Receive Date: 20080429
  Receipt Date: 20080422
  Transmission Date: 20081010
  Serious: Yes (Other)
  Sender: FDA-Public Use
  Company Number: PHEH2008US03988

PATIENT
  Sex: Female

DRUGS (2)
  1. TEKTURNA [Suspect]
  2. NORMODYNE [Concomitant]

REACTIONS (2)
  - BLOOD PRESSURE DECREASED [None]
  - LOSS OF CONSCIOUSNESS [None]
